FAERS Safety Report 4749025-7 (Version None)
Quarter: 2005Q3

REPORT INFORMATION
  Report Type: 
  Country: None (occurrence: None)
  Receive Date: 20050817
  Receipt Date: 20050805
  Transmission Date: 20060218
  Serious: Yes (Hospitalization)
  Sender: FDA-Public Use
  Company Number: 2005110914

PATIENT
  Age: 52 Year
  Sex: Male

DRUGS (6)
  1. ALDACTONE [Suspect]
     Indication: CHRONIC HEPATITIS
     Dosage: 25 MG (25 MG, DAILY), ORAL
     Route: 048
     Dates: start: 20050701, end: 20050713
  2. FUROSEMIDE [Suspect]
     Indication: CHRONIC HEPATITIS
     Dosage: 40 MG (40 MG, DAILY), ORAL
     Route: 048
     Dates: start: 20050701, end: 20050713
  3. SOLGOL (NADOLOL) [Concomitant]
  4. LACTULOSE [Concomitant]
  5. CORONUR (ISOSORBIDE MONONITRATE) [Concomitant]
  6. MIXTARD HUMAN 70/30 [Concomitant]

REACTIONS (2)
  - DRUG INTERACTION [None]
  - ENCEPHALOPATHY [None]
